FAERS Safety Report 8020587-X (Version None)
Quarter: 2012Q1

REPORT INFORMATION
  Report Type: 
  Country: None (occurrence: None)
  Receive Date: 20120103
  Receipt Date: 20111222
  Transmission Date: 20120608
  Serious: Yes (Death)
  Sender: FDA-Public Use
  Company Number: AT-CELGENEUS-009-21880-11122885

PATIENT
  Age: 73 Year
  Sex: Male

DRUGS (3)
  1. VORINOSTAT [Suspect]
     Indication: PERIPHERAL T-CELL LYMPHOMA UNSPECIFIED
     Dosage: 400 MILLIGRAM
     Route: 048
     Dates: start: 20111212, end: 20111216
  2. METHYLPREDNISOLONE [Suspect]
     Indication: PERIPHERAL T-CELL LYMPHOMA UNSPECIFIED
     Dosage: 40 MILLIGRAM
     Route: 048
     Dates: start: 20111212
  3. REVLIMID [Suspect]
     Indication: PERIPHERAL T-CELL LYMPHOMA UNSPECIFIED
     Dosage: 5 MILLIGRAM
     Route: 048
     Dates: start: 20111212

REACTIONS (1)
  - PERIPHERAL T-CELL LYMPHOMA UNSPECIFIED [None]
